FAERS Safety Report 6947596-3 (Version None)
Quarter: 2010Q3

REPORT INFORMATION
  Report Type: 
  Country: None (occurrence: None)
  Receive Date: 20100828
  Receipt Date: 20090922
  Transmission Date: 20110219
  Serious: No
  Sender: FDA-Public Use
  Company Number: US-ABBOTT-09P-163-0599312-00

PATIENT
  Sex: Female
  Weight: 71.732 kg

DRUGS (5)
  1. NIASPAN [Suspect]
     Indication: BLOOD CHOLESTEROL INCREASED
     Dates: start: 20070101, end: 20090908
  2. NIASPAN [Suspect]
     Dates: start: 20090909
  3. SIMVASTATIN [Concomitant]
     Indication: BLOOD CHOLESTEROL INCREASED
  4. AVANDAMET [Concomitant]
     Indication: DIABETES MELLITUS
  5. AVAPRO [Concomitant]
     Indication: RENAL DISORDER

REACTIONS (1)
  - WRONG TECHNIQUE IN DRUG USAGE PROCESS [None]
